FAERS Safety Report 8578289-7 (Version None)
Quarter: 2012Q3

REPORT INFORMATION
  Report Type: 
  Country: None (occurrence: None)
  Receive Date: 20120808
  Receipt Date: 20120731
  Transmission Date: 20120928
  Serious: Yes (Hospitalization)
  Sender: FDA-Public Use
  Company Number: US-BAYER-2012-079054

PATIENT
  Age: 43 Year
  Sex: Female
  Weight: 70.295 kg

DRUGS (5)
  1. SINEMENT [Concomitant]
  2. YASMIN [Suspect]
  3. FENTANYL [Concomitant]
  4. DROSPIRENONE AND ETHINYL ESTRADIOL [Suspect]
  5. VICODIN [Concomitant]
     Indication: PAIN

REACTIONS (1)
  - DEEP VEIN THROMBOSIS [None]
